FAERS Safety Report 10279249 (Version 1)
Quarter: 2014Q3

REPORT INFORMATION
  Report Type: Spontaneous
  Country: US (occurrence: US)
  Receive Date: 20140707
  Receipt Date: 20140707
  Transmission Date: 20150326
  Serious: No
  Sender: FDA-Public Use
  Company Number: US-BIOGENIDEC-2014BI063046

PATIENT
  Sex: Male

DRUGS (2)
  1. AVONEX [Suspect]
     Active Substance: INTERFERON BETA-1A
     Indication: MULTIPLE SCLEROSIS
     Route: 030
     Dates: start: 1998, end: 200502
  2. TYSABRI [Concomitant]
     Active Substance: NATALIZUMAB
     Indication: MULTIPLE SCLEROSIS
     Dates: start: 200210, end: 200412

REACTIONS (6)
  - Ataxia [Not Recovered/Not Resolved]
  - VIth nerve paralysis [Unknown]
  - White matter lesion [Unknown]
  - Multiple sclerosis relapse [Recovered/Resolved]
  - Facial paresis [Not Recovered/Not Resolved]
  - Pupillary reflex impaired [Unknown]

NARRATIVE: CASE EVENT DATE: 1998
